FAERS Safety Report 7345195-5 (Version None)
Quarter: 2011Q1

REPORT INFORMATION
  Report Type: 
  Country: None (occurrence: None)
  Receive Date: 20110310
  Receipt Date: 20110304
  Transmission Date: 20110831
  Serious: Yes (Other)
  Sender: FDA-Public Use
  Company Number: US-PFIZER INC-2010169377

PATIENT
  Sex: Female

DRUGS (1)
  1. GEODON [Suspect]
     Dosage: UNK

REACTIONS (6)
  - BLOOD PRESSURE INCREASED [None]
  - DIARRHOEA [None]
  - HEART RATE INCREASED [None]
  - BLOOD SODIUM DECREASED [None]
  - GASTRITIS [None]
  - WITHDRAWAL SYNDROME [None]
